FAERS Safety Report 18338695 (Version 1)
Quarter: 2020Q4

REPORT INFORMATION
  Report Type: Spontaneous
  Country: US (occurrence: US)
  Receive Date: 20201002
  Receipt Date: 20201002
  Transmission Date: 20210113
  Serious: No
  Sender: FDA-Public Use
  Company Number: US-SAREPTA THERAPEUTICS INC.-SRP2020-000668

PATIENT
  Age: 21 Year
  Sex: Male
  Weight: 63.49 kg

DRUGS (7)
  1. EXONDYS 51 [Suspect]
     Active Substance: ETEPLIRSEN
     Indication: DUCHENNE MUSCULAR DYSTROPHY
     Dosage: 1900 MG, WEEKLY
     Route: 042
     Dates: start: 20180830, end: 20191212
  2. EXONDYS 51 [Suspect]
     Active Substance: ETEPLIRSEN
     Dosage: 1900 MG, WEELY
     Route: 042
     Dates: start: 20200102
  3. CARVEDILOL. [Concomitant]
     Active Substance: CARVEDILOL
     Indication: PRODUCT USED FOR UNKNOWN INDICATION
     Dosage: 12.5 MG, AS DIRECTED
     Route: 048
  4. PROVENTIL HFA [Concomitant]
     Active Substance: ALBUTEROL SULFATE
     Indication: PRODUCT USED FOR UNKNOWN INDICATION
     Dosage: 108(90), AS NEEDED
     Route: 045
  5. SODIUM CHLORIDE. [Concomitant]
     Active Substance: SODIUM CHLORIDE
     Indication: INFUSION
     Dosage: 50 ML, AS DIRECTED
     Route: 042
     Dates: start: 20180830
  6. LISINOPRIL. [Concomitant]
     Active Substance: LISINOPRIL
     Indication: PRODUCT USED FOR UNKNOWN INDICATION
     Dosage: 10 MG, QD
     Route: 048
  7. SALINE [Concomitant]
     Active Substance: SODIUM CHLORIDE
     Indication: INFUSION
     Dosage: 10 ML, AS DIRECTED
     Route: 042
     Dates: start: 20180830

REACTIONS (3)
  - Product dose omission issue [Recovered/Resolved]
  - No adverse event [Unknown]
  - Product communication issue [Recovered/Resolved]

NARRATIVE: CASE EVENT DATE: 20191219
